FAERS Safety Report 5004997-0 (Version None)
Quarter: 2006Q1

REPORT INFORMATION
  Report Type: 
  Country: None (occurrence: None)
  Receive Date: 20060327
  Receipt Date: 20060130
  Transmission Date: 20060701
  Serious: No
  Sender: FDA-Public Use
  Company Number: SP00766

PATIENT
  Sex: Male

DRUGS (1)
  1. XIFAXAN [Suspect]
     Indication: VOMITING
     Dosage: QD, ORAL
     Route: 048
     Dates: start: 20060101

REACTIONS (1)
  - ABDOMINAL PAIN UPPER [None]
